FAERS Safety Report 4903300-1 (Version None)
Quarter: 2006Q1

REPORT INFORMATION
  Report Type: 
  Country: None (occurrence: None)
  Receive Date: 20060208
  Receipt Date: 20050420
  Transmission Date: 20060701
  Serious: Yes (Hospitalization)
  Sender: FDA-Public Use
  Company Number: FR-SANOFI-SYNTHELABO-A02200501108

PATIENT
  Sex: Male
  Weight: 78 kg

DRUGS (2)
  1. XATRAL [Suspect]
     Indication: PROSTATIC ADENOMA
     Route: 048
     Dates: start: 20001001, end: 20021001
  2. XATRAL [Suspect]
     Route: 048
     Dates: start: 20020101

REACTIONS (6)
  - ARRHYTHMIA [None]
  - DIZZINESS [None]
  - DYSURIA [None]
  - MALAISE [None]
  - TEMPORAL LOBE EPILEPSY [None]
  - THERAPEUTIC RESPONSE DECREASED [None]
